FAERS Safety Report 4512038-4 (Version None)
Quarter: 2004Q4

REPORT INFORMATION
  Report Type: 
  Country: None (occurrence: None)
  Receive Date: 20041123
  Receipt Date: 20041116
  Transmission Date: 20050328
  Serious: Yes (Other)
  Sender: FDA-Public Use
  Company Number: US-2004-032344

PATIENT
  Age: 52 Year
  Sex: Female
  Weight: 44.4525 kg

DRUGS (7)
  1. BETASERON [Suspect]
     Indication: RELAPSING-REMITTING MULTIPLE SCLEROSIS
     Dosage: 9.6 MIU, EVERY 2D, SUBCUTANEOUS
     Route: 058
     Dates: start: 20040201, end: 20040831
  2. NEURONTIN [Concomitant]
  3. PROZAC [Concomitant]
  4. DITROPAN XL [Concomitant]
  5. KLONOPIN [Concomitant]
  6. ZOCOR [Concomitant]
  7. ZETIA [Concomitant]

REACTIONS (4)
  - ABASIA [None]
  - HEPATITIS C [None]
  - MOTOR DYSFUNCTION [None]
  - RESPIRATORY TRACT CONGESTION [None]
